FAERS Safety Report 24222517 (Version 2)
Quarter: 2024Q3

REPORT INFORMATION
  Report Type: Spontaneous
  Country: EU (occurrence: EU)
  Receive Date: 20240819
  Receipt Date: 20240911
  Transmission Date: 20241016
  Serious: Yes (Death, Hospitalization, Other)
  Sender: BAUSCH AND LOMB
  Company Number: DE-BRISTOL-MYERS SQUIBB COMPANY-2024-069469

PATIENT
  Age: 69 Year
  Sex: Male
  Weight: 72 kg

DRUGS (19)
  1. PREDNISOLONE ACETATE [Suspect]
     Active Substance: PREDNISOLONE ACETATE
     Indication: Product used for unknown indication
     Route: 065
  2. NIVOLUMAB [Suspect]
     Active Substance: NIVOLUMAB
     Indication: Gastric cancer
     Route: 042
     Dates: start: 20240402
  3. FLUOROURACIL [Suspect]
     Active Substance: FLUOROURACIL
     Indication: Gastric cancer
     Route: 040
     Dates: start: 20240402
  4. OXALIPLATIN [Suspect]
     Active Substance: OXALIPLATIN
     Indication: Gastric cancer
     Route: 042
     Dates: start: 20240402, end: 20240416
  5. PANCREATIN [Concomitant]
     Active Substance: PANCRELIPASE
     Indication: Product used for unknown indication
     Dosage: 25000 I.E
     Route: 048
  6. METAMIZOLE SODIUM [Concomitant]
     Active Substance: METAMIZOLE SODIUM
     Indication: Product used for unknown indication
     Route: 048
  7. OLMESARTAN [Concomitant]
     Active Substance: OLMESARTAN
     Indication: Product used for unknown indication
     Route: 048
  8. SPIRONOLACTONE [Concomitant]
     Active Substance: SPIRONOLACTONE
     Indication: Product used for unknown indication
     Route: 048
     Dates: start: 20240408, end: 20240702
  9. SPIRONOLACTONE [Concomitant]
     Active Substance: SPIRONOLACTONE
     Route: 048
     Dates: start: 20240716
  10. SPIRONOLACTONE [Concomitant]
     Active Substance: SPIRONOLACTONE
     Route: 048
     Dates: start: 20240402, end: 20240407
  11. SPIRONOLACTONE [Concomitant]
     Active Substance: SPIRONOLACTONE
     Route: 048
     Dates: start: 20240408, end: 20240702
  12. SPIRONOLACTONE [Concomitant]
     Active Substance: SPIRONOLACTONE
     Route: 048
     Dates: start: 20240703, end: 20240715
  13. APIXABAN [Concomitant]
     Active Substance: APIXABAN
     Indication: Product used for unknown indication
     Route: 048
  14. TORSEMIDE [Concomitant]
     Active Substance: TORSEMIDE
     Indication: Product used for unknown indication
     Route: 042
     Dates: start: 20240402, end: 20240407
  15. TORSEMIDE [Concomitant]
     Active Substance: TORSEMIDE
     Route: 040
     Dates: start: 20240514, end: 20240610
  16. TORSEMIDE [Concomitant]
     Active Substance: TORSEMIDE
     Route: 040
     Dates: start: 20240408, end: 20240513
  17. TORSEMIDE [Concomitant]
     Active Substance: TORSEMIDE
     Route: 040
     Dates: start: 20240611
  18. SUCRALFATE [Concomitant]
     Active Substance: SUCRALFATE
     Indication: Product used for unknown indication
     Route: 048
  19. TAMSULOSIN [Concomitant]
     Active Substance: TAMSULOSIN
     Indication: Product used for unknown indication
     Route: 048

REACTIONS (9)
  - Drug-induced liver injury [Fatal]
  - Type 3 diabetes mellitus [Unknown]
  - Rash pruritic [Recovered/Resolved]
  - Hypokalaemia [Unknown]
  - Blood glucose increased [Unknown]
  - Testicular swelling [Not Recovered/Not Resolved]
  - Blood alkaline phosphatase increased [Unknown]
  - Lymphopenia [Unknown]
  - Hypocalcaemia [Recovered/Resolved]

NARRATIVE: CASE EVENT DATE: 20240416
